FAERS Safety Report 23878678 (Version 1)
Quarter: 2024Q2

REPORT INFORMATION
  Report Type: Spontaneous
  Country: US (occurrence: None)
  Receive Date: 20240520
  Receipt Date: 20240520
  Transmission Date: 20240716
  Serious: Yes (unspecified)
  Sender: FDA-Public Use
  Company Number: None

PATIENT
  Age: 34 Year
  Sex: Female
  Weight: 115.65 kg

DRUGS (1)
  1. CYANOCOBALAMIN\TIRZEPATIDE [Suspect]
     Active Substance: CYANOCOBALAMIN\TIRZEPATIDE
     Indication: Weight decreased
     Dosage: 1 INJECTION  1 PER WEEK SUBCUTANEOUS
     Route: 058
     Dates: start: 20240420, end: 20240520

REACTIONS (4)
  - Injection site swelling [None]
  - Injection site warmth [None]
  - Injection site pruritus [None]
  - Injection site erythema [None]

NARRATIVE: CASE EVENT DATE: 20240511
